FAERS Safety Report 6566579-9 (Version None)
Quarter: 2010Q1

REPORT INFORMATION
  Report Type: 
  Country: None (occurrence: None)
  Receive Date: 20100127
  Receipt Date: 20100115
  Transmission Date: 20100710
  Serious: Yes (Death, Hospitalization)
  Sender: FDA-Public Use
  Company Number: POMP-1000772

PATIENT
  Age: 72 Year
  Sex: Female
  Weight: 55 kg

DRUGS (1)
  1. MYOZYME [Suspect]
     Indication: GLYCOGEN STORAGE DISEASE TYPE II
     Dosage: 20 MG/KG, INTRAVENOUS
     Route: 042
     Dates: start: 20061101, end: 20090701

REACTIONS (4)
  - MULTI-ORGAN FAILURE [None]
  - PNEUMONIA [None]
  - RESPIRATORY FAILURE [None]
  - URINARY TRACT INFECTION [None]
